FAERS Safety Report 7657110-5 (Version None)
Quarter: 2011Q3

REPORT INFORMATION
  Report Type: 
  Country: None (occurrence: None)
  Receive Date: 20110804
  Receipt Date: 20101223
  Transmission Date: 20111222
  Serious: No
  Sender: FDA-Public Use
  Company Number: US-GLAXOSMITHKLINE-A0901434A

PATIENT
  Age: 74 Year
  Sex: Male

DRUGS (4)
  1. ADVAIR DISKUS 100/50 [Suspect]
     Indication: CHRONIC OBSTRUCTIVE PULMONARY DISEASE
     Dosage: 1PUFF TWICE PER DAY
     Route: 055
     Dates: start: 20010101
  2. SYNTHROID [Concomitant]
  3. COUMADIN [Concomitant]
  4. PROTONIX [Concomitant]

REACTIONS (2)
  - CANDIDIASIS [None]
  - DYSPHONIA [None]
